FAERS Safety Report 5829960-9 (Version None)
Quarter: 2008Q3

REPORT INFORMATION
  Report Type: 
  Country: None (occurrence: None)
  Receive Date: 20080731
  Receipt Date: 20080731
  Transmission Date: 20090109
  Serious: Yes (Life-Threatening, Hospitalization, Disabling)
  Sender: FDA-Public Use
  Company Number: None

PATIENT
  Age: 77 Year
  Sex: Male
  Weight: 108.86 kg

DRUGS (1)
  1. WARFARIN SODIUM [Suspect]
     Indication: ATRIAL FIBRILLATION
     Dosage: 60 MG QWEEK PO
     Route: 048
     Dates: start: 20060816, end: 20071226

REACTIONS (4)
  - EXTRADURAL HAEMATOMA [None]
  - HAEMORRHAGE INTRACRANIAL [None]
  - MENTAL STATUS CHANGES [None]
  - SEDATION [None]
